FAERS Safety Report 16969157 (Version 1)
Quarter: 2019Q4

REPORT INFORMATION
  Report Type: Spontaneous
  Country: GB (occurrence: GB)
  Receive Date: 20191029
  Receipt Date: 20191029
  Transmission Date: 20200122
  Serious: Yes (Life-Threatening)
  Sender: FDA-Public Use
  Company Number: GB-TEVA-2019-GB-1128442

PATIENT
  Age: 63 Year
  Sex: Female
  Weight: 81 kg

DRUGS (23)
  1. NAPROXEN. [Concomitant]
     Active Substance: NAPROXEN
     Dosage: AFTER FOOD
     Dates: start: 20190716, end: 20190723
  2. HYDROXOCOBALAMIN [Concomitant]
     Active Substance: HYDROXOCOBALAMIN
     Dates: start: 20190724, end: 20190725
  3. RAMIPRIL. [Suspect]
     Active Substance: RAMIPRIL
     Indication: HYPERTENSION
     Dosage: 5 MILLIGRAM
     Route: 065
     Dates: start: 20190916, end: 20190924
  4. LACTULOSE. [Concomitant]
     Active Substance: LACTULOSE
     Dates: start: 20190509
  5. LANSOPRAZOLE. [Concomitant]
     Active Substance: LANSOPRAZOLE
     Dates: start: 20190509
  6. CHLORPHENAMINE [Concomitant]
     Active Substance: CHLORPHENIRAMINE MALEATE
     Dates: start: 20190509
  7. AMITRIPTYLINE HYDROCHLORIDE. [Concomitant]
     Active Substance: AMITRIPTYLINE HYDROCHLORIDE
     Dosage: AT NIGHT
     Dates: start: 20190509
  8. RANITIDINE. [Concomitant]
     Active Substance: RANITIDINE
     Dates: start: 20190509
  9. BISACODYL. [Concomitant]
     Active Substance: BISACODYL
     Dosage: AT NIGHT
     Dates: start: 20190509
  10. ESTRIOL [Concomitant]
     Active Substance: ESTRIOL
     Dosage: APPLY EVERY NIGHT FOR 2 WEEKS, THEN TWICE A WEEK
     Dates: start: 20190916, end: 20190930
  11. SALBUTAMOL [Concomitant]
     Active Substance: ALBUTEROL
     Route: 055
     Dates: start: 20190509
  12. BENDROFLUMETHIAZIDE [Concomitant]
     Active Substance: BENDROFLUMETHIAZIDE
     Dosage: EACH MORNING
     Dates: start: 20190509
  13. GABAPENTIN. [Concomitant]
     Active Substance: GABAPENTIN
     Dates: start: 20190509
  14. ZOMORPH [Concomitant]
     Active Substance: MORPHINE SULFATE
     Dates: start: 20190509
  15. LIDOCAINE. [Concomitant]
     Active Substance: LIDOCAINE
     Dosage: APPLY SEVERAL TIMES DAILY; FOR SHORT-TERM USE ONLY
     Dates: start: 20190916, end: 20190923
  16. ATORVASTATIN [Concomitant]
     Active Substance: ATORVASTATIN
     Indication: BLOOD CHOLESTEROL INCREASED
     Dosage: AT NIGHT
     Dates: start: 20190916
  17. PROCTOSEDYL [Concomitant]
     Active Substance: DIBUCAINE HYDROCHLORIDE\HYDROCORTISONE
     Dosage: INSERT ONE AS NEEDED
     Dates: start: 20190916, end: 20190920
  18. LOSARTAN. [Concomitant]
     Active Substance: LOSARTAN
     Dates: start: 20190924
  19. ESTRADIOL VALERATE. [Concomitant]
     Active Substance: ESTRADIOL VALERATE
     Dates: start: 20190509
  20. SALICYLIC ACID. [Concomitant]
     Active Substance: SALICYLIC ACID
     Dosage: APPLY 4 TIMES/DAY
     Dates: start: 20190509
  21. SYMBICORT [Concomitant]
     Active Substance: BUDESONIDE\FORMOTEROL FUMARATE DIHYDRATE
     Route: 055
     Dates: start: 20190509
  22. MEBEVERINE HYDROCHLORIDE [Concomitant]
     Active Substance: MEBEVERINE HYDROCHLORIDE
     Dates: start: 20190509
  23. TRAMADOL. [Concomitant]
     Active Substance: TRAMADOL
     Dates: start: 20190509

REACTIONS (1)
  - Anaphylactic reaction [Recovered/Resolved]
